FAERS Safety Report 13550685 (Version 1)
Quarter: 2017Q2

REPORT INFORMATION
  Report Type: Spontaneous
  Country: US (occurrence: US)
  Receive Date: 20170516
  Receipt Date: 20170516
  Transmission Date: 20170830
  Serious: Yes (Life-Threatening)
  Sender: FDA-Public Use
  Company Number: None

PATIENT
  Age: 73 Year
  Sex: Female
  Weight: 46.31 kg

DRUGS (13)
  1. METFORMIN HCL [Concomitant]
     Active Substance: METFORMIN HYDROCHLORIDE
  2. CRANBERRY STANDISIZED [Concomitant]
  3. LISINOPRIL. [Concomitant]
     Active Substance: LISINOPRIL
  4. VITAMIN D3 [Concomitant]
     Active Substance: CHOLECALCIFEROL
  5. ULTIMATE PROBIOTIC [Concomitant]
  6. ATORVASTATIN-CALCIUM GENERIC FOR LIPITOR [Concomitant]
     Active Substance: ATORVASTATIN CALCIUM
  7. BRILINTA [Concomitant]
     Active Substance: TICAGRELOR
  8. ROSUVASTATIN-CALCIUM 40MG TAB A POT-GENERIC FOR CRESTOR 40MG TAB [Suspect]
     Active Substance: ROSUVASTATIN CALCIUM
     Indication: BLOOD CHOLESTEROL ABNORMAL
     Route: 048
     Dates: start: 20161221, end: 20170310
  9. GLIMEPISIDE AMARYL [Concomitant]
  10. METOPROLOL SUCCINATE. [Concomitant]
     Active Substance: METOPROLOL SUCCINATE
  11. FERROUS SULFATE. [Concomitant]
     Active Substance: FERROUS SULFATE
  12. GENERIC TOPRIL [Concomitant]
  13. ASPIRIN. [Concomitant]
     Active Substance: ASPIRIN

REACTIONS (14)
  - Loss of personal independence in daily activities [None]
  - Thyroid disorder [None]
  - Pain [None]
  - Muscle spasms [None]
  - Liver injury [None]
  - Asthenia [None]
  - Disturbance in attention [None]
  - Viral upper respiratory tract infection [None]
  - Weight decreased [None]
  - Lethargy [None]
  - Decreased appetite [None]
  - Fatigue [None]
  - Renal disorder [None]
  - Therapy cessation [None]

NARRATIVE: CASE EVENT DATE: 20161222
